FAERS Safety Report 5286098-X (Version None)
Quarter: 2007Q1

REPORT INFORMATION
  Report Type: 
  Country: None (occurrence: None)
  Receive Date: 20070329
  Receipt Date: 20070320
  Transmission Date: 20070707
  Serious: Yes (Other)
  Sender: FDA-Public Use
  Company Number: 238676

PATIENT
  Sex: Female

DRUGS (2)
  1. AVASTIN [Suspect]
     Indication: BREAST CANCER METASTATIC
     Dosage: 500 MG, Q2W, INTRAVENOUS
     Route: 042
  2. XELODA [Concomitant]

REACTIONS (2)
  - RETINAL OEDEMA [None]
  - VISION BLURRED [None]
